FAERS Safety Report 8513081-0 (Version None)
Quarter: 2012Q3

REPORT INFORMATION
  Report Type: 
  Country: None (occurrence: None)
  Receive Date: 20120716
  Receipt Date: 20120709
  Transmission Date: 20120928
  Serious: Yes (Death)
  Sender: FDA-Public Use
  Company Number: US-CELGENEUS-163-21880-12070821

PATIENT
  Sex: Female

DRUGS (39)
  1. PLATELETS [Concomitant]
     Route: 041
  2. DUCOSATE [Concomitant]
     Dosage: 250 MILLIGRAM
     Route: 048
  3. MIRALAX [Concomitant]
     Dosage: 34 GRAM
     Route: 048
  4. LASIX [Concomitant]
     Dosage: 40 MILLIGRAM
     Route: 065
  5. ALLOPURINOL [Concomitant]
     Dosage: 300 MILLIGRAM
     Route: 048
  6. POTASSIUM CHLORIDE [Concomitant]
     Route: 065
  7. VITAMIN B-12 [Concomitant]
     Route: 065
  8. VITAMIN D [Concomitant]
     Route: 065
  9. INSULIN [Concomitant]
     Dosage: 20 UNITS
     Route: 065
  10. NS BOLUS [Concomitant]
     Dosage: 1000 MILLILITER
     Route: 041
  11. VANCOMYCIN [Concomitant]
     Dosage: 450 MILLIGRAM
     Route: 041
  12. BISACODYL [Concomitant]
     Dosage: 10 MILLIGRAM
     Route: 048
  13. DEXAMETHASONE [Concomitant]
     Dosage: 10 MILLIGRAM
     Route: 041
  14. FILGRASTIM [Concomitant]
     Route: 058
  15. GLUTOSE [Concomitant]
     Route: 048
  16. SENNA-MINT WAF [Concomitant]
     Route: 065
  17. INSULIN [Concomitant]
     Dosage: 34 UNITS
     Route: 065
  18. INSULIN [Concomitant]
     Dosage: 80 IU (INTERNATIONAL UNIT)
     Route: 058
  19. MAGNESIUM HYDROXIDE TAB [Concomitant]
     Route: 048
  20. ZOSYN [Concomitant]
     Dosage: 13.5 MILLIGRAM
     Route: 041
  21. ACTIVASE [Concomitant]
     Dosage: 2 MILLIGRAM
     Route: 041
  22. METOCLOPRAMIDE [Concomitant]
     Route: 041
  23. ACETAMINOPHEN [Concomitant]
     Route: 048
  24. VIDAZA [Suspect]
     Dosage: 154 MILLIGRAM
     Route: 058
     Dates: start: 20120525, end: 20120531
  25. COMPAZINE [Concomitant]
     Route: 065
  26. INSULIN LISPRO [Concomitant]
     Dosage: 0.01-18 UNITS
     Route: 058
  27. TRIPLE MIX [Concomitant]
     Route: 065
  28. ANUSOL [Concomitant]
     Route: 054
  29. CEFEPIME [Concomitant]
     Indication: HYPOTENSION
     Route: 065
  30. RED BLOOD CELLS [Concomitant]
     Route: 041
  31. REVLIMID [Suspect]
     Dosage: 50 MILLIGRAM
     Route: 048
     Dates: start: 20120601, end: 20120621
  32. REGLAN [Concomitant]
     Route: 065
  33. MAGNESIUM CITRATE [Concomitant]
     Dosage: 300 MILLILITER
     Route: 048
  34. INSULIN LISPRO [Concomitant]
     Dosage: 5 IU (INTERNATIONAL UNIT)
     Route: 041
  35. DEXTROSE [Concomitant]
     Route: 041
  36. PANTOPRAZOLE [Concomitant]
     Dosage: 80 MILLIGRAM
     Route: 041
  37. CALCIUM [Concomitant]
     Route: 065
  38. ONDANSETRON HCL [Concomitant]
     Route: 041
  39. MORPHINE [Concomitant]
     Dosage: 1-2MG
     Route: 041

REACTIONS (2)
  - SEPSIS [None]
  - ACUTE MYELOID LEUKAEMIA [None]
